FAERS Safety Report 4307719-1 (Version None)
Quarter: 2004Q1

REPORT INFORMATION
  Report Type: 
  Country: None (occurrence: None)
  Receive Date: 20040225
  Receipt Date: 20030514
  Transmission Date: 20041129
  Serious: Yes (Hospitalization, Disabling)
  Sender: FDA-Public Use
  Company Number: WAES 0305USA01578

PATIENT
  Age: 82 Year
  Sex: Male

DRUGS (2)
  1. ZOCOR [Suspect]
     Indication: HYPERLIPIDAEMIA
     Dosage: 80 MG/DAILY/PO
     Route: 048
     Dates: start: 20030512, end: 20030514
  2. [THERAPY UNSPECIFIED] [Concomitant]

REACTIONS (1)
  - RHABDOMYOLYSIS [None]
